FAERS Safety Report 6425415-1 (Version None)
Quarter: 2009Q4

REPORT INFORMATION
  Report Type: 
  Country: None (occurrence: None)
  Receive Date: 20091029
  Receipt Date: 20090819
  Transmission Date: 20100525
  Serious: Yes (Other)
  Sender: FDA-Public Use
  Company Number: DSA_41509_2009

PATIENT
  Sex: Male

DRUGS (3)
  1. BUPROPION HYDROCHLORIDE [Suspect]
     Indication: DEPRESSION
     Dosage: (150 MG QD, 150MG PER DAY ORAL)
     Route: 048
     Dates: start: 20090601, end: 20090601
  2. WELLBUTRIN [Suspect]
     Indication: DEPRESSION
     Dosage: (150 MG QD, 150MG PER DAY ORAL)
     Route: 048
     Dates: start: 20080101, end: 20080101
  3. AMLODIPINE BESYLATE AND BENAZEPRIL HCL [Concomitant]

REACTIONS (5)
  - DRUG INEFFECTIVE [None]
  - ERYTHEMA [None]
  - OEDEMA PERIPHERAL [None]
  - PRODUCT QUALITY ISSUE [None]
  - SKIN EXFOLIATION [None]
